FAERS Safety Report 6671479-X (Version None)
Quarter: 2010Q2

REPORT INFORMATION
  Report Type: 
  Country: None (occurrence: None)
  Receive Date: 20100407
  Receipt Date: 20100330
  Transmission Date: 20101027
  Serious: Yes (Disabling)
  Sender: FDA-Public Use
  Company Number: JP-MERCK-1003USA02552

PATIENT
  Age: 62 Year
  Sex: Female

DRUGS (9)
  1. FOSAMAX [Suspect]
     Indication: OSTEOPOROSIS
     Route: 048
     Dates: start: 20080228, end: 20100301
  2. BENET [Suspect]
     Indication: OSTEOPOROSIS
     Route: 048
     Dates: start: 20040901, end: 20080227
  3. ONEALFA [Concomitant]
     Indication: OSTEOPOROSIS
     Route: 048
     Dates: start: 20040927
  4. LOXONIN [Concomitant]
     Indication: ANTIINFLAMMATORY THERAPY
     Route: 048
     Dates: end: 20080213
  5. METHYCOBAL [Concomitant]
     Indication: NEUROPATHY PERIPHERAL
     Route: 048
     Dates: start: 20070309, end: 20080715
  6. MYONAL [Concomitant]
     Indication: MUSCLE TIGHTNESS
     Route: 048
     Dates: start: 20070614
  7. CELECOX [Concomitant]
     Indication: ANTIINFLAMMATORY THERAPY
     Route: 048
     Dates: start: 20080214, end: 20080314
  8. PEPCID [Concomitant]
     Indication: GASTRITIS
     Route: 048
     Dates: start: 20080214
  9. MOBIC [Concomitant]
     Route: 065
     Dates: start: 20070424, end: 20070624

REACTIONS (3)
  - FEMUR FRACTURE [None]
  - FOOT FRACTURE [None]
  - HAND FRACTURE [None]
